FAERS Safety Report 25534331 (Version 5)
Quarter: 2025Q4

REPORT INFORMATION
  Report Type: Spontaneous
  Country: US (occurrence: US)
  Receive Date: 20250709
  Receipt Date: 20251013
  Transmission Date: 20260117
  Serious: No
  Sender: PFIZER
  Company Number: US-PFIZER INC-202500134944

PATIENT
  Age: 14 Year
  Sex: Male
  Weight: 72.57 kg

DRUGS (1)
  1. GENOTROPIN [Suspect]
     Active Substance: SOMATROPIN
     Indication: Hypopituitarism
     Dosage: 2.4 MG, 6 TIMES WEEK, ADMINISTERED IN ARM, STOMACH
     Dates: start: 202406

REACTIONS (3)
  - Drug dose omission by device [Unknown]
  - Product administered at inappropriate site [Unknown]
  - Device breakage [Unknown]

NARRATIVE: CASE EVENT DATE: 20250702
